FAERS Safety Report 5014753-5 (Version None)
Quarter: 2006Q2

REPORT INFORMATION
  Report Type: 
  Country: None (occurrence: None)
  Receive Date: 20060531
  Receipt Date: 20060519
  Transmission Date: 20061013
  Serious: Yes (Hospitalization)
  Sender: FDA-Public Use
  Company Number: PHEH2006US06646

PATIENT
  Age: 57 Year
  Sex: Male
  Weight: 102.49 kg

DRUGS (8)
  1. LOTREL [Suspect]
     Indication: HYPERTENSION
     Dosage: 5/20 MG, BID
     Route: 048
     Dates: start: 20060501, end: 20060515
  2. DOCUSATE CALCIUM [Concomitant]
  3. INSULIN INSULATARD NPH NORDISK [Concomitant]
  4. LIPITOR [Concomitant]
     Dosage: 80 MG, UNK
  5. METOLAZONE [Concomitant]
     Dosage: 5 MG, UNK
  6. K-10 SOLUTION [Concomitant]
  7. TOPROL-XL [Concomitant]
  8. WARFARIN SODIUM [Concomitant]
     Dosage: 5 MG, UNK

REACTIONS (4)
  - ABDOMINAL PAIN [None]
  - HICCUPS [None]
  - NAUSEA [None]
  - VOMITING [None]
